FAERS Safety Report 12998761 (Version 7)
Quarter: 2017Q2

REPORT INFORMATION
  Report Type: Spontaneous
  Country: US (occurrence: US)
  Receive Date: 20161205
  Receipt Date: 20170509
  Transmission Date: 20170830
  Serious: Yes (Hospitalization, Other)
  Sender: FDA-Public Use
  Company Number: US-CELGENEUS-USA-2016120171

PATIENT
  Age: 75 Year
  Sex: Male
  Weight: 78.09 kg

DRUGS (2)
  1. REVLIMID [Suspect]
     Active Substance: LENALIDOMIDE
     Indication: PLASMA CELL MYELOMA
     Dosage: 15 MG
     Route: 048
     Dates: start: 201502
  2. REVLIMID [Suspect]
     Active Substance: LENALIDOMIDE
     Dosage: 5 MG
     Route: 048
     Dates: start: 201503

REACTIONS (7)
  - Pelvic fracture [Unknown]
  - Rib fracture [Not Recovered/Not Resolved]
  - Localised infection [Recovered/Resolved]
  - Localised infection [Not Recovered/Not Resolved]
  - Hand fracture [Unknown]
  - Laceration [Not Recovered/Not Resolved]
  - Fall [Not Recovered/Not Resolved]

NARRATIVE: CASE EVENT DATE: 20161126
